FAERS Safety Report 18627037 (Version 1)
Quarter: 2020Q4

REPORT INFORMATION
  Report Type: Spontaneous
  Country: US (occurrence: US)
  Receive Date: 20201216
  Receipt Date: 20201216
  Transmission Date: 20210114
  Serious: Yes (Life-Threatening, Hospitalization)
  Sender: FDA-Public Use
  Company Number: None

PATIENT
  Age: 54 Year
  Sex: Male
  Weight: 93.89 kg

DRUGS (1)
  1. AMITRIPTYLINE (AMITRIPTYLINE HCL 10MG TAB) [Suspect]
     Active Substance: AMITRIPTYLINE HYDROCHLORIDE
     Indication: PAIN
     Route: 048
     Dates: start: 20201006, end: 20201006

REACTIONS (3)
  - Hypotension [None]
  - Tremor [None]
  - Anaphylactic reaction [None]

NARRATIVE: CASE EVENT DATE: 20201006
